FAERS Safety Report 22337417 (Version 1)
Quarter: 2023Q2

REPORT INFORMATION
  Report Type: Spontaneous
  Country: US (occurrence: US)
  Receive Date: 20230518
  Receipt Date: 20230518
  Transmission Date: 20230722
  Serious: No
  Sender: FDA-Public Use
  Company Number: US-BRISTOL-MYERS SQUIBB COMPANY-2023-069492

PATIENT
  Age: 71 Year
  Sex: Female

DRUGS (1)
  1. LENALIDOMIDE [Suspect]
     Active Substance: LENALIDOMIDE
     Indication: Plasma cell myeloma
     Dosage: QD2WON2WOFF ( EVERY DAY FOR 2 WEEKS ON AND 2 WEEKS OFF)
     Route: 048

REACTIONS (2)
  - Pruritus [Unknown]
  - Off label use [Unknown]
